FAERS Safety Report 7384122-1 (Version None)
Quarter: 2011Q1

REPORT INFORMATION
  Report Type: 
  Country: None (occurrence: None)
  Receive Date: 20110330
  Receipt Date: 20110323
  Transmission Date: 20110831
  Serious: Yes (Other)
  Sender: FDA-Public Use
  Company Number: A0919547A

PATIENT
  Age: 3 Year
  Sex: Male

DRUGS (2)
  1. MULTIVITAMIN [Concomitant]
  2. FLOVENT [Suspect]
     Indication: PROPHYLAXIS
     Dosage: 2PUFF TWICE PER DAY
     Route: 055
     Dates: start: 20110301

REACTIONS (7)
  - INTENTIONAL SELF-INJURY [None]
  - RESTLESSNESS [None]
  - ENURESIS [None]
  - ANGER [None]
  - NIGHTMARE [None]
  - DEPRESSION [None]
  - DRUG ADMINISTRATION ERROR [None]
